FAERS Safety Report 8871913 (Version 1)
Quarter: 2012Q4

REPORT INFORMATION
  Report Type: 
  Country: US (occurrence: US)
  Receive Date: 20121026
  Receipt Date: 20121026
  Transmission Date: 20130627
  Serious: No
  Sender: FDA-Public Use
  Company Number: US-AMGEN-USASP2012048942

PATIENT
  Age: 57 Year
  Sex: Female

DRUGS (12)
  1. ENBREL [Suspect]
     Indication: PRODUCT USED FOR UNKNOWN INDICATION
     Dosage: 50 mg, qwk
     Route: 058
  2. PLAQUENIL                          /00072602/ [Concomitant]
     Dosage: 200 mg, UNK
  3. AMBIEN [Concomitant]
     Dosage: 10 mg, UNK
  4. METHOTREXATE [Concomitant]
     Dosage: 2.5 mg, UNK
  5. SYNTHROID [Concomitant]
     Dosage: 75 mug, UNK
  6. FOLIC ACID [Concomitant]
     Dosage: 1 mg, UNK
  7. ESTRADIOL [Concomitant]
     Dosage: 0.5 mg, UNK
  8. ZANTAC [Concomitant]
     Dosage: 75 UNK, UNK
  9. MAGNESIUM [Concomitant]
     Dosage: 500 mg, UNK
  10. CLARITIN                           /00413701/ [Concomitant]
     Dosage: 10 mg, UNK
  11. FISH OIL [Concomitant]
     Dosage: UNK
  12. MULTIVITAMINS, PLAIN [Concomitant]
     Dosage: UNK

REACTIONS (1)
  - Fungal infection [Recovering/Resolving]
